FAERS Safety Report 10701944 (Version 2)
Quarter: 2015Q1

REPORT INFORMATION
  Report Type: Report from Study
  Country: US (occurrence: US)
  Receive Date: 20150109
  Receipt Date: 20150127
  Transmission Date: 20150721
  Serious: Yes (Other)
  Sender: FDA-Public Use
  Company Number: US-ABBVIE-15K-163-1329558-00

PATIENT
  Age: 48 Year
  Sex: Female
  Weight: 58.11 kg

DRUGS (4)
  1. CHLORPHENIRAMINE [Concomitant]
     Active Substance: CHLORPHENIRAMINE
     Indication: PRODUCT USED FOR UNKNOWN INDICATION
  2. AMBIEN [Concomitant]
     Active Substance: ZOLPIDEM TARTRATE
     Indication: PRODUCT USED FOR UNKNOWN INDICATION
  3. HYDROXYZINE [Concomitant]
     Active Substance: HYDROXYZINE\HYDROXYZINE HYDROCHLORIDE
     Indication: PRODUCT USED FOR UNKNOWN INDICATION
  4. HUMIRA [Suspect]
     Active Substance: ADALIMUMAB
     Indication: DERMATOMYOSITIS
     Route: 065
     Dates: start: 20141126

REACTIONS (3)
  - Visual acuity reduced [Recovered/Resolved]
  - Wrong technique in drug usage process [Unknown]
  - Urinary tract infection [Not Recovered/Not Resolved]

NARRATIVE: CASE EVENT DATE: 20141223
